FAERS Safety Report 6930521-9 (Version None)
Quarter: 2010Q3

REPORT INFORMATION
  Report Type: 
  Country: None (occurrence: None)
  Receive Date: 20100818
  Receipt Date: 20100806
  Transmission Date: 20110219
  Serious: Yes (Other)
  Sender: FDA-Public Use
  Company Number: A0862625A

PATIENT
  Age: 47 Year
  Sex: Female
  Weight: 80 kg

DRUGS (2)
  1. AVANDIA [Suspect]
     Route: 048
     Dates: start: 20050101, end: 20060101
  2. AVANDAMET [Suspect]
     Route: 048
     Dates: start: 20050101, end: 20060101

REACTIONS (3)
  - LIVER FUNCTION TEST ABNORMAL [None]
  - LIVER INJURY [None]
  - NERVE INJURY [None]
